FAERS Safety Report 25347665 (Version 1)
Quarter: 2025Q2

REPORT INFORMATION
  Report Type: Spontaneous
  Country: US (occurrence: None)
  Receive Date: 20250522
  Receipt Date: 20250522
  Transmission Date: 20250716
  Serious: No
  Sender: FDA-CTU
  Company Number: None

PATIENT
  Age: 53 Year
  Sex: Female
  Weight: 105.3 kg

DRUGS (7)
  1. KESIMPTA [Suspect]
     Active Substance: OFATUMUMAB
     Indication: Multiple sclerosis
     Route: 058
     Dates: start: 20250518
  2. ankle brace [Concomitant]
  3. knee brace [Concomitant]
  4. walker/care [Concomitant]
  5. MULTI-VITAMIN [Concomitant]
     Active Substance: .ALPHA.-TOCOPHEROL ACETATE, DL-\ASCORBIC ACID\CYANOCOBALAMIN\FLUORIDE ION\FOLIC ACID\NIACIN\PYRIDOXI
  6. MOTRIN [Concomitant]
     Active Substance: IBUPROFEN
  7. EXCEDRIN [Concomitant]
     Active Substance: ACETAMINOPHEN\ASPIRIN\CAFFEINE

REACTIONS (10)
  - Fatigue [None]
  - Somnolence [None]
  - Migraine [None]
  - Chills [None]
  - Nausea [None]
  - Pyrexia [None]
  - Chest discomfort [None]
  - Chest pain [None]
  - Arthralgia [None]
  - Hypersomnia [None]

NARRATIVE: CASE EVENT DATE: 20250518
